FAERS Safety Report 8888089 (Version 1)
Quarter: 2012Q4

REPORT INFORMATION
  Report Type: 
  Country: US (occurrence: US)
  Receive Date: 20121106
  Receipt Date: 20121106
  Transmission Date: 20130627
  Serious: Yes (Other)
  Sender: FDA-Public Use
  Company Number: US-PFIZER INC-2012276796

PATIENT
  Sex: Female

DRUGS (3)
  1. LYRICA [Suspect]
     Indication: NERVE PAIN
     Dosage: 2 capsules of 50mg three times a day
     Route: 048
     Dates: start: 201207, end: 20121030
  2. SYNTHROID [Concomitant]
     Dosage: UNK
  3. DIOVAN [Concomitant]
     Indication: BLOOD PRESSURE HIGH
     Dosage: UNK

REACTIONS (3)
  - Surgery [Unknown]
  - Nausea [Not Recovered/Not Resolved]
  - Headache [Not Recovered/Not Resolved]
